FAERS Safety Report 21506674 (Version 1)
Quarter: 2022Q4

REPORT INFORMATION
  Report Type: Spontaneous
  Country: US (occurrence: US)
  Receive Date: 20221026
  Receipt Date: 20221026
  Transmission Date: 20230113
  Serious: Yes (Other)
  Sender: FDA-Public Use
  Company Number: US-GLENMARK PHARMACEUTICALS-2022GMK076029

PATIENT
  Age: 34 Year
  Sex: Male

DRUGS (1)
  1. TRIAMCINOLONE ACETONIDE [Suspect]
     Active Substance: TRIAMCINOLONE ACETONIDE
     Indication: Alopecia
     Dosage: UNK MONTHLY (FORMULATION: INJECTION)
     Route: 065

REACTIONS (5)
  - Lemierre syndrome [Unknown]
  - Osteomyelitis acute [Unknown]
  - Injection site swelling [Unknown]
  - Injection site discharge [Unknown]
  - Injection site abscess [Unknown]
